FAERS Safety Report 11354621 (Version 1)
Quarter: 2015Q3

REPORT INFORMATION
  Report Type: Spontaneous
  Country: US (occurrence: US)
  Receive Date: 20150807
  Receipt Date: 20150807
  Transmission Date: 20151125
  Serious: No
  Sender: FDA-Public Use
  Company Number: US-JNJFOC-20150705393

PATIENT
  Age: 73 Year
  Sex: Female
  Weight: 56.7 kg

DRUGS (2)
  1. WOMENS ROGAINE UNSCENTED [Suspect]
     Active Substance: MINOXIDIL
     Route: 061
  2. WOMENS ROGAINE UNSCENTED [Suspect]
     Active Substance: MINOXIDIL
     Indication: ALOPECIA
     Dosage: 1/2 CAP
     Route: 061

REACTIONS (2)
  - Drug administered at inappropriate site [Not Recovered/Not Resolved]
  - Hair growth abnormal [Not Recovered/Not Resolved]
